FAERS Safety Report 5401054-6 (Version None)
Quarter: 2007Q3

REPORT INFORMATION
  Report Type: 
  Country: None (occurrence: None)
  Receive Date: 20070731
  Receipt Date: 20070723
  Transmission Date: 20080115
  Serious: Yes (Other)
  Sender: FDA-Public Use
  Company Number: US-BAYER-200712343BCC

PATIENT
  Sex: Male

DRUGS (2)
  1. ALEVE [Suspect]
     Indication: PROCEDURAL PAIN
     Dosage: TOTAL DAILY DOSE: 1320 MG  UNIT DOSE: 220 MG
     Route: 048
     Dates: start: 20070722
  2. TYLENOL (CAPLET) [Suspect]
     Indication: PROCEDURAL PAIN
     Route: 048
     Dates: start: 20070722

REACTIONS (2)
  - CHEST PAIN [None]
  - TACHYCARDIA [None]
